FAERS Safety Report 6022779-8 (Version None)
Quarter: 2008Q4

REPORT INFORMATION
  Report Type: 
  Country: None (occurrence: None)
  Receive Date: 20081230
  Receipt Date: 20081219
  Transmission Date: 20090506
  Serious: Yes (Hospitalization)
  Sender: FDA-Public Use
  Company Number: FR-AVENTIS-200821776GDDC

PATIENT
  Age: 80 Year
  Sex: Female

DRUGS (11)
  1. MINIRIN [Suspect]
     Indication: URINARY INCONTINENCE
     Route: 048
     Dates: end: 20080101
  2. OLMESARTAN/HYDROCHLOROTHIAZIDE [Suspect]
     Dosage: DOSE: UNK
     Route: 048
     Dates: end: 20080630
  3. ATHYMIL [Suspect]
     Indication: DEPRESSION
     Route: 048
     Dates: end: 20080630
  4. AVLOCARDYL [Concomitant]
     Route: 048
  5. SERESTA [Concomitant]
     Indication: DEPRESSION
     Route: 048
  6. DAFALGAN                           /00020001/ [Concomitant]
     Dosage: DOSE: UNK
     Route: 048
  7. DITROPAN [Concomitant]
     Indication: URINARY INCONTINENCE
     Route: 048
  8. RABEPRAZOLE SODIUM [Concomitant]
     Dosage: DOSE: UNK
     Route: 048
  9. SIBELIUM                           /00505202/ [Concomitant]
     Indication: VERTIGO
     Route: 048
  10. DRUGS AFFECTING MINERALIZATION [Concomitant]
     Indication: OSTEOPOROSIS
     Dosage: DOSE: UNK
     Route: 048
  11. OSTRAM                             /00183801/ [Concomitant]
     Indication: OSTEOPOROSIS
     Route: 048

REACTIONS (2)
  - FALL [None]
  - HYPONATRAEMIA [None]
